FAERS Safety Report 8881793 (Version 1)
Quarter: 2012Q4

REPORT INFORMATION
  Report Type: 
  Country: DE (occurrence: FR)
  Receive Date: 20121102
  Receipt Date: 20121102
  Transmission Date: 20130627
  Serious: Yes (Hospitalization)
  Sender: FDA-Public Use
  Company Number: FR-BRISTOL-MYERS SQUIBB COMPANY-17092321

PATIENT
  Age: 72 Year
  Sex: Male

DRUGS (5)
  1. ERBITUX SOLN FOR INF [Suspect]
     Indication: HEAD AND NECK CANCER
     Dosage: Last dose: 13Aug2012(Cumulated dose 12075 mg)
     Route: 042
     Dates: start: 20120207, end: 20120813
  2. BISOPROLOL [Concomitant]
     Dosage: 1Df=1.25 mg ,Capsule
     Route: 048
  3. SIMVASTATIN [Concomitant]
     Dosage: 1Df=20mg ,Tablet
     Route: 048
  4. LASILIX [Concomitant]
     Dosage: 1Df=40mg tablet
     Route: 048
  5. PREVISCAN [Concomitant]
     Indication: ATRIAL FIBRILLATION
     Dosage: According to INR.Tablet
     Route: 048

REACTIONS (2)
  - Cardiac failure [Recovering/Resolving]
  - Hypomagnesaemia [Recovered/Resolved]
